FAERS Safety Report 16353374 (Version 1)
Quarter: 2019Q2

REPORT INFORMATION
  Report Type: Spontaneous
  Country: JP (occurrence: JP)
  Receive Date: 20190524
  Receipt Date: 20190524
  Transmission Date: 20190711
  Serious: Yes (Death, Hospitalization)
  Sender: FDA-Public Use
  Company Number: JP-KYOWAKIRIN-2019AKK002585

PATIENT

DRUGS (1)
  1. POTELIGEO [Suspect]
     Active Substance: MOGAMULIZUMAB-KPKC
     Indication: PERIPHERAL T-CELL LYMPHOMA UNSPECIFIED
     Dosage: UNK
     Route: 041
     Dates: start: 20190205, end: 201904

REACTIONS (2)
  - Death [Fatal]
  - Infusion related reaction [Recovered/Resolved]

NARRATIVE: CASE EVENT DATE: 20190207
